FAERS Safety Report 18511805 (Version 1)
Quarter: 2020Q4

REPORT INFORMATION
  Report Type: Spontaneous
  Country: JP (occurrence: JP)
  Receive Date: 20201117
  Receipt Date: 20201117
  Transmission Date: 20210114
  Serious: Yes (Other)
  Sender: FDA-Public Use
  Company Number: JP-PFIZER INC-2020450055

PATIENT

DRUGS (3)
  1. SELARA [Suspect]
     Active Substance: EPLERENONE
     Dosage: UNK
     Route: 048
     Dates: start: 2020
  2. CANDESARTAN. [Interacting]
     Active Substance: CANDESARTAN
     Dosage: UNK
     Route: 048
     Dates: start: 2020
  3. BLOPRESS [Interacting]
     Active Substance: CANDESARTAN CILEXETIL
     Dosage: UNK
     Route: 048
     Dates: start: 2020

REACTIONS (3)
  - Fatigue [Unknown]
  - Drug interaction [Unknown]
  - Pollakiuria [Unknown]

NARRATIVE: CASE EVENT DATE: 2020
